FAERS Safety Report 8476325-X (Version None)
Quarter: 2012Q2

REPORT INFORMATION
  Report Type: 
  Country: None (occurrence: None)
  Receive Date: 20120628
  Receipt Date: 20120620
  Transmission Date: 20120825
  Serious: Yes (Life-Threatening, Hospitalization)
  Sender: FDA-Public Use
  Company Number: PHHO2009NL05469

PATIENT
  Sex: Male
  Weight: 103 kg

DRUGS (2)
  1. TACROLIMUS [Suspect]
     Indication: LIVER TRANSPLANT
     Dosage: UNK
     Dates: start: 20080920, end: 20090105
  2. EVEROLIMUS [Suspect]
     Indication: LIVER TRANSPLANT
     Dosage: 6 MG, QD
     Route: 048
     Dates: start: 20080916

REACTIONS (4)
  - CONGESTIVE CARDIOMYOPATHY [None]
  - FATIGUE [None]
  - DYSPNOEA [None]
  - DYSPNOEA EXERTIONAL [None]
